FAERS Safety Report 25750565 (Version 1)
Quarter: 2025Q3

REPORT INFORMATION
  Report Type: Spontaneous
  Country: US (occurrence: None)
  Receive Date: 20250829
  Receipt Date: 20250829
  Transmission Date: 20251021
  Serious: Yes (Death)
  Sender: FDA-CTU
  Company Number: None

PATIENT
  Age: 51 Year
  Sex: Female

DRUGS (11)
  1. CAPECITABINE [Suspect]
     Active Substance: CAPECITABINE
     Indication: Breast cancer
     Dosage: 2500 MG BID ORAL ?
     Route: 048
     Dates: start: 20250715
  2. VITAMIN D 1,000UNIT CAPSULES [Concomitant]
  3. TAMOXIFEN 20MG TABLETS [Concomitant]
  4. CYCLOBENZAPRINE [Concomitant]
     Active Substance: CYCLOBENZAPRINE
  5. FAMOTIDINE [Concomitant]
     Active Substance: FAMOTIDINE
  6. GABAPENTIN [Concomitant]
     Active Substance: GABAPENTIN
  7. OXYCODONE [Concomitant]
     Active Substance: OXYCODONE
  8. METOPROLOL [Concomitant]
     Active Substance: METOPROLOL
  9. SPIRONOLACTONE [Concomitant]
     Active Substance: SPIRONOLACTONE
  10. ONDANSETRON [Concomitant]
     Active Substance: ONDANSETRON
  11. DEXAMETHASONE [Concomitant]
     Active Substance: DEXAMETHASONE

REACTIONS (1)
  - Breast cancer metastatic [None]

NARRATIVE: CASE EVENT DATE: 20250813
